FAERS Safety Report 10771900 (Version 2)
Quarter: 2015Q1

REPORT INFORMATION
  Report Type: Report from Study
  Country: BR (occurrence: BR)
  Receive Date: 20150206
  Receipt Date: 20150212
  Transmission Date: 20150721
  Serious: Yes (Death, Hospitalization, Other)
  Sender: FDA-Public Use
  Company Number: PHHY2015BR014511

PATIENT
  Age: 77 Year
  Sex: Male

DRUGS (1)
  1. EXELON PATCH [Suspect]
     Active Substance: RIVASTIGMINE
     Indication: DEMENTIA ALZHEIMER^S TYPE
     Dosage: 4.6 MG, QD (5 CM2 / 9 MG RIVASTIGMINE BASE)
     Route: 062
     Dates: start: 201405

REACTIONS (7)
  - Cognitive disorder [Not Recovered/Not Resolved]
  - Pneumonia [Fatal]
  - General physical health deterioration [Fatal]
  - Pyrexia [Fatal]
  - Dyspnoea [Fatal]
  - Speech disorder [Not Recovered/Not Resolved]
  - Mental disorder [Not Recovered/Not Resolved]

NARRATIVE: CASE EVENT DATE: 201408
